FAERS Safety Report 14253898 (Version 1)
Quarter: 2017Q4

REPORT INFORMATION
  Report Type: Report from Study
  Country: GB (occurrence: GB)
  Receive Date: 20171206
  Receipt Date: 20171206
  Transmission Date: 20180321
  Serious: Yes (Life-Threatening, Other)
  Sender: FDA-Public Use
  Company Number: GB-VISTAPHARM, INC.-VER201711-001219

PATIENT
  Age: 21 Year
  Sex: Female

DRUGS (2)
  1. PREDNISOLONE. [Suspect]
     Active Substance: PREDNISOLONE
     Indication: TYPE 1 LEPRA REACTION
  2. CICLOSPORIN [Suspect]
     Active Substance: CYCLOSPORINE
     Indication: TYPE 1 LEPRA REACTION

REACTIONS (2)
  - Immunosuppression [Unknown]
  - Pulmonary tuberculosis [Unknown]
